FAERS Safety Report 6133287-8 (Version None)
Quarter: 2009Q1

REPORT INFORMATION
  Report Type: 
  Country: None (occurrence: None)
  Receive Date: 20090326
  Receipt Date: 20090316
  Transmission Date: 20090719
  Serious: Yes (Other)
  Sender: FDA-Public Use
  Company Number: US-SP-2009-01132

PATIENT
  Age: 37 Year
  Sex: Female

DRUGS (4)
  1. BOTULISM AB [Suspect]
     Indication: BOTULISM
     Route: 042
     Dates: start: 20090122
  2. CITALOPRAM HYDROBROMIDE [Concomitant]
     Dosage: QD
     Route: 048
  3. LEVOTHYROXINE SODIUM [Concomitant]
     Dosage: QD
     Route: 048
  4. ZYRTEC [Concomitant]
     Dosage: PRN
     Route: 048

REACTIONS (2)
  - SWELLING FACE [None]
  - SWOLLEN TONGUE [None]
